FAERS Safety Report 11953226 (Version 4)
Quarter: 2016Q2

REPORT INFORMATION
  Report Type: Report from Study
  Country: US (occurrence: US)
  Receive Date: 20160126
  Receipt Date: 20160406
  Transmission Date: 20160815
  Serious: Yes (Other)
  Sender: FDA-Public Use
  Company Number: US-BAYER-2015-447146

PATIENT
  Age: 49 Year
  Sex: Female

DRUGS (3)
  1. STIVARGA [Suspect]
     Active Substance: REGORAFENIB
     Indication: COLON CANCER
     Dosage: 120 MG, QD  (21 DAYS ON, 7 DAYS OFF)
     Route: 048
     Dates: start: 20151001, end: 20160204
  2. STIVARGA [Suspect]
     Active Substance: REGORAFENIB
     Indication: COLON CANCER
     Dosage: 160 MG, QD (21 ON 7 OFF)
     Route: 048
     Dates: start: 20150603
  3. STIVARGA [Suspect]
     Active Substance: REGORAFENIB
     Indication: HEPATIC CANCER
     Dosage: 160 MG, QD
     Route: 048
     Dates: start: 20150930

REACTIONS (18)
  - Blister [None]
  - Gait disturbance [Recovering/Resolving]
  - Blister [None]
  - Erythema [None]
  - Depression [None]
  - Facial pain [None]
  - Dysgeusia [None]
  - Dry skin [None]
  - Pain in extremity [None]
  - Yellow skin [None]
  - Weight decreased [None]
  - Upper respiratory tract infection [None]
  - Diarrhoea [Recovered/Resolved]
  - Diarrhoea [None]
  - Abdominal distension [None]
  - Pain in extremity [Recovering/Resolving]
  - Limb discomfort [None]
  - Alopecia [None]

NARRATIVE: CASE EVENT DATE: 201601
